FAERS Safety Report 20363423 (Version 1)
Quarter: 2022Q1

REPORT INFORMATION
  Report Type: Spontaneous
  Country: BR (occurrence: BR)
  Receive Date: 20220121
  Receipt Date: 20220121
  Transmission Date: 20220424
  Serious: Yes (Other)
  Sender: FDA-Public Use
  Company Number: BR-BIOMARINAP-BR-2022-140913

PATIENT
  Age: 9 Year
  Sex: Male
  Weight: 21 kg

DRUGS (4)
  1. ALDURAZYME [Suspect]
     Active Substance: LARONIDASE
     Indication: Mucopolysaccharidosis I
     Dosage: 4 DOSAGE FORM, QW
     Route: 042
     Dates: start: 20130101
  2. ALDURAZYME [Suspect]
     Active Substance: LARONIDASE
     Dosage: UNK, QOW
     Route: 042
     Dates: start: 20210401, end: 2021
  3. ALDURAZYME [Suspect]
     Active Substance: LARONIDASE
     Dosage: 4 DOSAGE FORM, QW
     Route: 042
     Dates: start: 2021, end: 20211206
  4. ALDURAZYME [Suspect]
     Active Substance: LARONIDASE
     Dosage: 4 DOSAGE FORM, QW
     Route: 042

REACTIONS (8)
  - Immunodeficiency [Recovering/Resolving]
  - Drug hypersensitivity [Recovering/Resolving]
  - Rash macular [Recovering/Resolving]
  - Erythema [Recovering/Resolving]
  - Influenza [Recovering/Resolving]
  - Nasopharyngitis [Recovering/Resolving]
  - Cough [Recovering/Resolving]
  - Product use issue [Unknown]

NARRATIVE: CASE EVENT DATE: 20210401
